FAERS Safety Report 8301501-6 (Version None)
Quarter: 2012Q2

REPORT INFORMATION
  Report Type: 
  Country: None (occurrence: None)
  Receive Date: 20120420
  Receipt Date: 20120417
  Transmission Date: 20120825
  Serious: Yes (Hospitalization)
  Sender: FDA-Public Use
  Company Number: PHHY2012US032814

PATIENT
  Age: 55 Year
  Sex: Male

DRUGS (1)
  1. FLUOROURACIL [Suspect]

REACTIONS (7)
  - HYPERTENSION [None]
  - ISCHAEMIA [None]
  - CHEST PAIN [None]
  - TACHYCARDIA [None]
  - DYSPNOEA [None]
  - HYPERHIDROSIS [None]
  - NAUSEA [None]
